FAERS Safety Report 7008723-5 (Version None)
Quarter: 2010Q3

REPORT INFORMATION
  Report Type: 
  Country: None (occurrence: None)
  Receive Date: 20100922
  Receipt Date: 20100908
  Transmission Date: 20110219
  Serious: Yes (Hospitalization)
  Sender: FDA-Public Use
  Company Number: JP-SANOFI-AVENTIS-2010SA053959

PATIENT
  Age: 59 Year
  Sex: Male

DRUGS (5)
  1. PLAVIX [Suspect]
     Indication: CEREBRAL INFARCTION
     Route: 048
  2. ASPIRIN [Concomitant]
     Route: 048
  3. ADALAT [Concomitant]
     Route: 048
  4. TANATRIL ^TANABE^ [Concomitant]
     Route: 048
  5. FERROMIA [Concomitant]
     Route: 048

REACTIONS (1)
  - BLOOD CREATINE PHOSPHOKINASE INCREASED [None]
